FAERS Safety Report 9849480 (Version 1)
Quarter: 2013Q4

REPORT INFORMATION
  Report Type: Spontaneous
  Country: US (occurrence: None)
  Receive Date: 20131226
  Receipt Date: 20131226
  Transmission Date: 20140711
  Serious: Yes (Other)
  Sender: FDA-Public Use
  Company Number: PHEH2013US012336

PATIENT
  Sex: Female

DRUGS (4)
  1. DIOVAN [Suspect]
  2. CLONIDINE (CLONIDINE) [Concomitant]
  3. SIMVASTATIN (SIMVASTATIN) [Concomitant]
  4. LEVOTHYROXINE (LEVOTHYROXINE) [Concomitant]

REACTIONS (2)
  - Blood pressure fluctuation [None]
  - Weight decreased [None]
